FAERS Safety Report 6509058-7 (Version None)
Quarter: 2009Q4

REPORT INFORMATION
  Report Type: 
  Country: None (occurrence: None)
  Receive Date: 20091218
  Receipt Date: 20091218
  Transmission Date: 20100525
  Serious: No
  Sender: FDA-Public Use
  Company Number: None

PATIENT
  Age: 35 Year
  Sex: Male

DRUGS (1)
  1. SERTRALINE HCL [Suspect]
     Indication: DEPRESSION
     Dosage: 50 MG EVERY DAY PO
     Route: 048
     Dates: start: 20090508, end: 20090605

REACTIONS (3)
  - FACIAL PAIN [None]
  - FACIAL PALSY [None]
  - HYPERACUSIS [None]
